FAERS Safety Report 16846878 (Version 12)
Quarter: 2021Q3

REPORT INFORMATION
  Report Type: Report from Study
  Country: GB (occurrence: GB)
  Receive Date: 20190924
  Receipt Date: 20210915
  Transmission Date: 20211014
  Serious: Yes (Death, Hospitalization, Other)
  Sender: FDA-Public Use
  Company Number: GB-MYLANLABS-2019M1088709

PATIENT
  Age: 65 Year
  Sex: Female
  Weight: 59 kg

DRUGS (26)
  1. TRIENTINE [Concomitant]
     Active Substance: TRIENTINE
     Dosage: UNK
  2. RAMIPRIL. [Concomitant]
     Active Substance: RAMIPRIL
     Indication: HYPERTENSION
     Dosage: UNK
     Route: 048
     Dates: end: 20181231
  3. BRALTUS [Concomitant]
     Active Substance: TIOTROPIUM BROMIDE
     Indication: CHRONIC OBSTRUCTIVE PULMONARY DISEASE
     Dosage: UNK
  4. PREDNISOLONE. [Concomitant]
     Active Substance: PREDNISOLONE
     Dosage: UNK
     Route: 048
     Dates: start: 20191023, end: 20191027
  5. ENBREL [Concomitant]
     Active Substance: ETANERCEPT
     Indication: RHEUMATOID ARTHRITIS
     Dosage: UNK
     Route: 058
     Dates: start: 2010, end: 201805
  6. CALCHEW [Concomitant]
     Indication: OSTEOARTHRITIS
     Dosage: UNK
     Route: 048
  7. FOSTAIR [Concomitant]
     Active Substance: BECLOMETHASONE\FORMOTEROL
     Indication: CHRONIC OBSTRUCTIVE PULMONARY DISEASE
     Dosage: UNK
     Route: 050
  8. ERELZI [Suspect]
     Active Substance: ETANERCEPT-SZZS
     Dosage: 50 MG, QW
     Route: 058
  9. TRIENTINE [Concomitant]
     Active Substance: TRIENTINE
     Indication: HEPATO-LENTICULAR DEGENERATION
     Dosage: UNK
     Route: 048
     Dates: end: 20190402
  10. BISOPROLOL [Concomitant]
     Active Substance: BISOPROLOL
     Indication: MYOCARDIAL ISCHAEMIA
     Dosage: UNK
     Route: 048
     Dates: start: 2012
  11. ELANTAN [Concomitant]
     Active Substance: ISOSORBIDE MONONITRATE
     Indication: MYOCARDIAL ISCHAEMIA
     Dosage: UNK
     Route: 048
     Dates: end: 20190402
  12. ERELZI [Suspect]
     Active Substance: ETANERCEPT-SZZS
     Dosage: 50 MG, QW
     Route: 058
     Dates: start: 20190430, end: 20191030
  13. PARACETAMOL [Concomitant]
     Active Substance: ACETAMINOPHEN
     Indication: RHEUMATOID ARTHRITIS
     Dosage: UNK
     Route: 048
  14. ATORVASTATIN [Concomitant]
     Active Substance: ATORVASTATIN
     Indication: PROPHYLAXIS
     Dosage: UNK
     Route: 048
  15. RANITIDINE. [Concomitant]
     Active Substance: RANITIDINE
     Indication: CHRONIC OBSTRUCTIVE PULMONARY DISEASE
     Dosage: UNK
     Route: 048
     Dates: start: 20191023
  16. LANSOPRAZOLE. [Suspect]
     Active Substance: LANSOPRAZOLE
     Indication: OESOPHAGITIS ULCERATIVE
     Dosage: UNK
     Route: 048
  17. ERELZI [Suspect]
     Active Substance: ETANERCEPT-SZZS
     Indication: RHEUMATOID ARTHRITIS
     Dosage: 50 MG, QW, ETANERCEPT 50 MG A WEEK
     Route: 058
     Dates: start: 201805, end: 20190422
  18. RANITIDINE. [Concomitant]
     Active Substance: RANITIDINE
     Indication: OESOPHAGITIS ULCERATIVE
     Dosage: UNK
     Route: 048
     Dates: start: 20181213, end: 20191027
  19. ASPIRIN                            /00002701/ [Concomitant]
     Active Substance: ASPIRIN
     Indication: MYOCARDIAL ISCHAEMIA
     Dosage: UNK
     Route: 048
     Dates: start: 2012
  20. PREDNISOLONE. [Concomitant]
     Active Substance: PREDNISOLONE
     Indication: CHRONIC OBSTRUCTIVE PULMONARY DISEASE
     Dosage: UNK
     Route: 048
  21. AMITRIPTYLINE [Concomitant]
     Active Substance: AMITRIPTYLINE
     Indication: MANIA
     Dosage: UNK
     Route: 048
  22. ELANTAN [Concomitant]
     Active Substance: ISOSORBIDE MONONITRATE
     Dosage: UNK
     Route: 048
     Dates: start: 2012
  23. ZOLEDRONIC ACID. [Concomitant]
     Active Substance: ZOLEDRONIC ACID
     Indication: OSTEOPOROSIS
     Dosage: UNK
     Route: 042
  24. AMILORIDE [Concomitant]
     Active Substance: AMILORIDE
     Indication: HYPERTENSION
     Dosage: UNK
     Route: 048
     Dates: start: 20191105
  25. ERELZI [Suspect]
     Active Substance: ETANERCEPT-SZZS
     Dosage: 50 MG, QW
     Route: 058
     Dates: start: 20191105
  26. VENTOLIN [Concomitant]
     Active Substance: ALBUTEROL SULFATE
     Indication: CHRONIC OBSTRUCTIVE PULMONARY DISEASE
     Dosage: UNK
     Route: 048
     Dates: start: 20150519

REACTIONS (23)
  - Anxiety [Unknown]
  - Gastric ulcer [Not Recovered/Not Resolved]
  - Hypomagnesaemia [Not Recovered/Not Resolved]
  - Confusional state [Unknown]
  - Burning sensation [Unknown]
  - Lower respiratory tract infection [Recovered/Resolved]
  - Corneal abrasion [Not Recovered/Not Resolved]
  - Pain [Not Recovered/Not Resolved]
  - Abdominal pain [Recovered/Resolved]
  - Diarrhoea [Unknown]
  - Gait disturbance [Unknown]
  - Joint swelling [Unknown]
  - Hepatic steatosis [Not Recovered/Not Resolved]
  - Fall [Recovered/Resolved]
  - Injection site bruising [Unknown]
  - Intestinal ischaemia [Fatal]
  - Constipation [Not Recovered/Not Resolved]
  - Arthralgia [Unknown]
  - Vomiting [Not Recovered/Not Resolved]
  - Acute kidney injury [Recovered/Resolved]
  - Chronic obstructive pulmonary disease [Recovered/Resolved]
  - Depressed mood [Unknown]
  - Tenderness [Unknown]

NARRATIVE: CASE EVENT DATE: 20180606
